FAERS Safety Report 16539701 (Version 1)
Quarter: 2019Q3

REPORT INFORMATION
  Report Type: Spontaneous
  Country: US (occurrence: US)
  Receive Date: 20190708
  Receipt Date: 20190708
  Transmission Date: 20191004
  Serious: Yes (Other)
  Sender: FDA-Public Use
  Company Number: US-PFIZER INC-2019285884

PATIENT
  Age: 51 Year
  Sex: Female
  Weight: 83.91 kg

DRUGS (3)
  1. PREMPRO [Suspect]
     Active Substance: ESTROGENS, CONJUGATED\MEDROXYPROGESTERONE ACETATE
     Dosage: UNK
  2. PREMPRO [Suspect]
     Active Substance: ESTROGENS, CONJUGATED\MEDROXYPROGESTERONE ACETATE
     Indication: PREMATURE MENOPAUSE
     Dosage: 1 DF, DAILY (ESTROGENS CONJUGATED 0.625 MG/ MEDROXYPROGESTERONE ACETATE 2.5 MG)
     Route: 048
  3. PREMPRO [Suspect]
     Active Substance: ESTROGENS, CONJUGATED\MEDROXYPROGESTERONE ACETATE
     Dosage: UNK

REACTIONS (4)
  - Vaginal haemorrhage [Unknown]
  - Vulvovaginal pain [Unknown]
  - Dysgeusia [Unknown]
  - Parosmia [Unknown]
